FAERS Safety Report 24093591 (Version 2)
Quarter: 2025Q4

REPORT INFORMATION
  Report Type: Spontaneous
  Country: AR (occurrence: AR)
  Receive Date: 20240715
  Receipt Date: 20251105
  Transmission Date: 20260118
  Serious: Yes (Other)
  Sender: SANDOZ
  Company Number: AR-SANDOZ-SDZ2024AR064955

PATIENT
  Age: 11 Year
  Sex: Female
  Weight: 50 kg

DRUGS (2)
  1. OMNITROPE [Suspect]
     Active Substance: SOMATROPIN
     Indication: Growth hormone deficiency
     Dosage: 1.2 (3 DAYS) AND 1.0 (3  DAYS), FREQUENCY 6, STRENGTH- 10MG
     Route: 058
     Dates: start: 20200320
  2. OMNITROPE [Suspect]
     Active Substance: SOMATROPIN
     Dosage: 1.2 MILLIGRAMS 3 DAYS  AND 1.4 MILLIGRAMS 3  DAYS, FREQUENCY 6
     Route: 058
     Dates: start: 20200320

REACTIONS (5)
  - Growth retardation [Unknown]
  - Scarlet fever [Unknown]
  - Vaginal haemorrhage [Unknown]
  - Breast disorder [Unknown]
  - Treatment noncompliance [Unknown]

NARRATIVE: CASE EVENT DATE: 20240615
